FAERS Safety Report 16670192 (Version 1)
Quarter: 2019Q3

REPORT INFORMATION
  Report Type: Other
  Country: BR (occurrence: BR)
  Receive Date: 20190805
  Receipt Date: 20190805
  Transmission Date: 20191004
  Serious: Yes (Other)
  Sender: FDA-Public Use
  Company Number: BR-GALDERMA-BR19031227

PATIENT
  Age: 36 Year
  Sex: Female

DRUGS (1)
  1. METRONIDAZOLE. [Suspect]
     Active Substance: METRONIDAZOLE
     Indication: ROSACEA
     Route: 061

REACTIONS (3)
  - Pyoderma [Recovered/Resolved]
  - Skin necrosis [Recovered/Resolved]
  - Folliculitis [Recovered/Resolved]
